FAERS Safety Report 7141699-9 (Version None)
Quarter: 2010Q4

REPORT INFORMATION
  Report Type: 
  Country: None (occurrence: None)
  Receive Date: 20101207
  Receipt Date: 20101126
  Transmission Date: 20110411
  Serious: Yes (Hospitalization)
  Sender: FDA-Public Use
  Company Number: US-BAXTER-2010BH025753

PATIENT
  Age: 9 Year
  Sex: Male

DRUGS (3)
  1. DIANEAL [Suspect]
     Indication: PERITONEAL DIALYSIS
     Route: 033
     Dates: start: 20080101
  2. DIANEAL [Suspect]
     Route: 033
  3. DIANEAL [Suspect]
     Route: 033
     Dates: start: 20101129

REACTIONS (2)
  - PENILE PAIN [None]
  - PYREXIA [None]
